FAERS Safety Report 13126868 (Version 2)
Quarter: 2017Q1

REPORT INFORMATION
  Report Type: Spontaneous
  Country: GB (occurrence: GB)
  Receive Date: 20170118
  Receipt Date: 20170130
  Transmission Date: 20170428
  Serious: Yes (Hospitalization, Other)
  Sender: FDA-Public Use
  Company Number: GB-AMGEN-GBRSP2017005985

PATIENT
  Age: 72 Year
  Sex: Male

DRUGS (1)
  1. ARANESP [Suspect]
     Active Substance: DARBEPOETIN ALFA
     Indication: PRODUCT USED FOR UNKNOWN INDICATION
     Dosage: 80 MUG (PER 0.4ML), 4 SYRINGE , UNK
     Route: 065

REACTIONS (3)
  - Post procedural infection [Unknown]
  - Dialysis [Unknown]
  - Nosocomial infection [Unknown]

NARRATIVE: CASE EVENT DATE: 20161226
